FAERS Safety Report 20995717 (Version 1)
Quarter: 2022Q2

REPORT INFORMATION
  Report Type: Spontaneous
  Country: US (occurrence: US)
  Receive Date: 20220623
  Receipt Date: 20220623
  Transmission Date: 20220721
  Serious: Yes (Hospitalization)
  Sender: FDA-Public Use
  Company Number: US-STRIDES ARCOLAB LIMITED-2022SP006242

PATIENT
  Age: 52 Year
  Sex: Male

DRUGS (3)
  1. PREDNISOLONE [Suspect]
     Active Substance: PREDNISOLONE
     Indication: Chronic graft versus host disease
     Dosage: 10 MILLIGRAM PER DAY
     Route: 065
  2. RUXOLITINIB [Suspect]
     Active Substance: RUXOLITINIB
     Indication: Chronic graft versus host disease
     Dosage: 10 MILLIGRAM, BID
     Route: 065
  3. CLINDAMYCIN HYDROCHLORIDE [Concomitant]
     Active Substance: CLINDAMYCIN HYDROCHLORIDE
     Indication: Erythema
     Dosage: UNK
     Route: 065

REACTIONS (3)
  - Onychomycosis [Not Recovered/Not Resolved]
  - Cellulitis [Recovered/Resolved]
  - Fungal infection [Recovered/Resolved]
